FAERS Safety Report 20074702 (Version 1)
Quarter: 2021Q4

REPORT INFORMATION
  Report Type: Spontaneous
  Country: US (occurrence: US)
  Receive Date: 20211116
  Receipt Date: 20211116
  Transmission Date: 20220303
  Serious: No
  Sender: FDA-Public Use
  Company Number: US-PFIZER INC-202101063811

PATIENT
  Age: 59 Year
  Sex: Female
  Weight: 113.4 kg

DRUGS (2)
  1. CHANTIX [Suspect]
     Active Substance: VARENICLINE TARTRATE
     Indication: Chronic obstructive pulmonary disease
     Dosage: 1 MG
     Dates: start: 2021, end: 2021
  2. CHANTIX [Suspect]
     Active Substance: VARENICLINE TARTRATE
     Indication: Cardiac failure congestive

REACTIONS (2)
  - Drug ineffective [Unknown]
  - Recalled product administered [Unknown]

NARRATIVE: CASE EVENT DATE: 20210101
